FAERS Safety Report 8351906-2 (Version None)
Quarter: 2012Q2

REPORT INFORMATION
  Report Type: 
  Country: None (occurrence: None)
  Receive Date: 20120511
  Receipt Date: 20120507
  Transmission Date: 20120825
  Serious: No
  Sender: FDA-Public Use
  Company Number: US-PFIZER INC-2012097204

PATIENT
  Sex: Female
  Weight: 113 kg

DRUGS (26)
  1. CELEXA [Concomitant]
     Dosage: 40 MG, 2X/DAY
  2. FOSAMAX [Concomitant]
     Dosage: 800/160MG TWO TIMES A DAY
  3. ADVAIR DISKUS 100/50 [Concomitant]
     Indication: ASTHMA
     Dosage: UNK, 2X/DAY
  4. NEURONTIN [Suspect]
     Dosage: UNK
     Route: 048
  5. LASIX [Suspect]
     Dosage: 20 MG, DAILY
  6. TRAZODONE [Concomitant]
     Dosage: 150 MG, 2X/DAY
  7. GLUCOPHAGE [Concomitant]
     Dosage: 500 MG, 2X/DAY
  8. IRON [Concomitant]
     Dosage: UNK
  9. PREDNISONE [Concomitant]
     Dosage: 10 MG, DAILY
  10. LEVOTHYROXINE [Concomitant]
     Dosage: 75 UG, DAILY
  11. OXYCODONE [Concomitant]
     Dosage: UNK, 6X/DAY
  12. NEURONTIN [Suspect]
     Dosage: 800MG, 3 TABLETS IN MORNING, 3 IN AFTERNOON AND 4 IN EVENING
     Route: 048
  13. ZANAFLEX [Concomitant]
     Dosage: 4 MG, 3X/DAY
  14. WELLBUTRIN [Concomitant]
     Dosage: 100 MG, 2X/DAY
  15. DETROL [Concomitant]
     Dosage: 5 MG, 2X/DAY
  16. COMBIVENT [Concomitant]
     Dosage: UNK, 2X/DAY
  17. ARAVA [Concomitant]
     Indication: RHEUMATOID ARTHRITIS
     Dosage: UNK
  18. NEURONTIN [Suspect]
     Dosage: UNK
     Route: 048
     Dates: start: 19980101
  19. ATENOLOL [Concomitant]
     Dosage: 50 MG, DAILY
  20. WARFARIN [Concomitant]
     Dosage: 5 MG, 3X/WEEK OR 4X/WEEK
  21. SULFASALAZINE [Concomitant]
     Dosage: 500 MG, DAILY
  22. POTASSIUM CHLORIDE [Concomitant]
     Dosage: 40 MG, DAILY
  23. DUONEB [Concomitant]
     Dosage: UNK
  24. LASIX [Suspect]
     Indication: MUSCLE SPASMS
     Dosage: 40 MG, DAILY
  25. OMEPRAZOLE [Concomitant]
     Dosage: UNK, 2X/DAY
  26. MIGRANAL [Concomitant]
     Indication: MIGRAINE
     Dosage: UNK, AS NEEDED

REACTIONS (6)
  - ACTIVITIES OF DAILY LIVING IMPAIRED [None]
  - BLOOD CREATININE DECREASED [None]
  - MUSCLE SPASMS [None]
  - PAIN [None]
  - DEPRESSED MOOD [None]
  - INCORRECT DOSE ADMINISTERED [None]
